FAERS Safety Report 9286231 (Version 1)
Quarter: 2013Q2

REPORT INFORMATION
  Report Type: Spontaneous
  Country: US (occurrence: US)
  Receive Date: 20130513
  Receipt Date: 20130513
  Transmission Date: 20140414
  Serious: Yes (Hospitalization)
  Sender: FDA-Public Use
  Company Number: PHEH2013US010491

PATIENT
  Sex: Female

DRUGS (2)
  1. TEKTURNA [Suspect]
     Dosage: 1 DF, QD
     Route: 048
  2. DIOVAN [Suspect]
     Dosage: UNK UKN, UNK

REACTIONS (1)
  - Cerebrovascular accident [Unknown]
